FAERS Safety Report 19963731 (Version 1)
Quarter: 2021Q4

REPORT INFORMATION
  Report Type: Spontaneous
  Country: US (occurrence: US)
  Receive Date: 20211018
  Receipt Date: 20211018
  Transmission Date: 20220303
  Serious: Yes (Hospitalization)
  Sender: FDA-Public Use
  Company Number: None

PATIENT
  Age: 21 Year
  Sex: Female
  Weight: 90 kg

DRUGS (2)
  1. PHENYTOIN [Suspect]
     Active Substance: PHENYTOIN
     Indication: Seizure
     Route: 048
     Dates: start: 20210326, end: 20210818
  2. CARBAMAZEPINE [Concomitant]
     Active Substance: CARBAMAZEPINE
     Dates: start: 20210819, end: 20210821

REACTIONS (6)
  - Ataxia [None]
  - Seizure [None]
  - Fall [None]
  - Head injury [None]
  - Therapy interrupted [None]
  - Anaphylactic reaction [None]

NARRATIVE: CASE EVENT DATE: 20210818
